FAERS Safety Report 4503603-9 (Version None)
Quarter: 2004Q4

REPORT INFORMATION
  Report Type: 
  Country: None (occurrence: None)
  Receive Date: 20041112
  Receipt Date: 20041103
  Transmission Date: 20050328
  Serious: Yes (Hospitalization)
  Sender: FDA-Public Use
  Company Number: 2004242949TH

PATIENT
  Age: 49 Year
  Sex: Male

DRUGS (3)
  1. BEXTRA [Suspect]
     Indication: PAIN
     Dosage: 1 DF, SINGLE, ORAL
     Route: 048
  2. NEURONTIN [Concomitant]
  3. COLCHICINE (COLCHICINE) [Concomitant]

REACTIONS (2)
  - DERMATITIS EXFOLIATIVE [None]
  - DRUG HYPERSENSITIVITY [None]
